FAERS Safety Report 21232424 (Version 1)
Quarter: 2022Q3

REPORT INFORMATION
  Report Type: Spontaneous
  Country: US (occurrence: None)
  Receive Date: 20220818
  Receipt Date: 20220818
  Transmission Date: 20221027
  Serious: No
  Sender: FDA-Public Use
  Company Number: None

PATIENT
  Sex: Female

DRUGS (1)
  1. HUMIRA [Suspect]
     Active Substance: ADALIMUMAB
     Indication: Rheumatoid arthritis
     Dosage: 40MG EVERY 14 DAYS SUBQ?
     Route: 058
     Dates: start: 202206

REACTIONS (5)
  - Oral infection [None]
  - Drug effect faster than expected [None]
  - Device malfunction [None]
  - Device leakage [None]
  - Product dose omission issue [None]
